FAERS Safety Report 26212263 (Version 1)
Quarter: 2025Q4

REPORT INFORMATION
  Report Type: Report from Study
  Country: US (occurrence: US)
  Receive Date: 20251230
  Receipt Date: 20251230
  Transmission Date: 20260117
  Serious: No
  Sender: Unknown Manufacturer
  Company Number: US-GENETIX BIOTHERAPEUTICS INC.-US-BBB-25-00091

PATIENT
  Age: 6 Year
  Sex: Male
  Weight: 23.129 kg

DRUGS (70)
  1. SKYSONA [Suspect]
     Active Substance: ELIVALDOGENE AUTOTEMCEL
     Indication: Adrenoleukodystrophy
     Dosage: 25.2 X 10^6 CD34+ CELLS/KG, SINGLE
     Route: 065
     Dates: start: 20250530, end: 20250530
  2. PLERIXAFOR [Concomitant]
     Active Substance: PLERIXAFOR
     Indication: Haematopoietic stem cell mobilisation
     Dosage: 5.2 MILLIGRAM, QD
     Route: 065
     Dates: start: 20241126, end: 20241127
  3. PLERIXAFOR [Concomitant]
     Active Substance: PLERIXAFOR
     Dosage: 5.4 MILLIGRAM, QD
     Route: 065
     Dates: start: 20250311, end: 20250313
  4. NEUPOGEN [Concomitant]
     Active Substance: FILGRASTIM
     Indication: Haematopoietic stem cell mobilisation
     Dosage: 210 MICROGRAM, QD
     Route: 065
     Dates: start: 20241126, end: 20241127
  5. FILGRASTIM AAFI [Concomitant]
     Indication: Haematopoietic stem cell mobilisation
     Dosage: 240 MCG IN DEXTROSE 5% 14.2 ML, QD
     Route: 065
     Dates: start: 20250312, end: 20250313
  6. BUSULFAN [Concomitant]
     Active Substance: BUSULFAN
     Indication: Bone marrow conditioning regimen
     Dosage: 18.08 MG (0.8 MILLIGRAM/KILOGRAM X 22.6 KG), QD
     Route: 065
     Dates: start: 20250520, end: 20250521
  7. BUSULFAN [Concomitant]
     Active Substance: BUSULFAN
     Dosage: 27.6 MILLIGRAM, QD
     Route: 065
     Dates: start: 20250521, end: 20250523
  8. CYCLOPHOSPHAMIDE [Concomitant]
     Active Substance: CYCLOPHOSPHAMIDE
     Indication: Bone marrow conditioning regimen
     Dosage: 50 MILLIGRAM/KILOGRAM X 22.6 KG, 168.3 ML, QD
     Route: 065
     Dates: start: 20250524, end: 20250527
  9. GLOFIL 125 [Concomitant]
     Indication: Prophylaxis
     Dosage: 16.7 MICROCURIE, SINGLE
     Dates: start: 20250506, end: 20250506
  10. POTASSIUM IODIDE [Concomitant]
     Active Substance: POTASSIUM IODIDE
     Indication: Product used for unknown indication
     Dosage: 70 MILLIGRAM, SINGLE
     Route: 061
     Dates: start: 20250506, end: 20250506
  11. HEPARIN [Concomitant]
     Active Substance: HEPARIN SODIUM
     Indication: Catheter management
     Dosage: SODIUM CHLORIDE 0.9% + HEPARIN 2 UNITS/ML
     Dates: start: 20250519, end: 20250519
  12. HEPARIN [Concomitant]
     Active Substance: HEPARIN SODIUM
     Indication: Anaesthesia
     Dosage: 10-200 UNITS, PRN
     Dates: start: 20250519, end: 20250618
  13. HEPARIN [Concomitant]
     Active Substance: HEPARIN SODIUM
     Dosage: 100-300 UNITS, PRN
     Dates: start: 20250519, end: 20250618
  14. HEPARIN [Concomitant]
     Active Substance: HEPARIN SODIUM
     Dosage: 0.81 MILLILITER, ADMINISTERED DURING A SURGICAL / ANESTHETIC PROCEDURE
     Dates: start: 20250519, end: 20250519
  15. MORPHINE [Concomitant]
     Active Substance: MORPHINE
     Indication: Procedural pain
     Dosage: 1.2 MILLIGRAM, Q2H PRN
     Dates: start: 20250519, end: 20250618
  16. GAMUNEX-C [Concomitant]
     Active Substance: HUMAN IMMUNOGLOBULIN G
     Indication: Product used for unknown indication
     Dosage: 9 GRAM, ONCE, ADMINISTERED OVER 4-24 HOURS
     Dates: start: 20250519, end: 20250519
  17. LEVETIRACETAM [Concomitant]
     Active Substance: LEVETIRACETAM
     Indication: Premedication
     Dosage: 230 MILLIGRAM, BID,92 ML/HR ADMINISTERED OVER 15 MINUTES
     Dates: start: 20250519, end: 20250525
  18. DEXTROSE [Concomitant]
     Active Substance: DEXTROSE MONOHYDRATE
     Indication: Product used for unknown indication
     Dosage: UPON ADMISSION INFUSE AT 55 ML/HR (62.5 ML/M2/HR). ON DAY -7, (5/23/25) AT 2100 INCREASE FLUIDS TO INFUSE AT 105 ML/HR (125 ML/M2/HR) AND CONTINUE UNTIL 24 HOURS AFTER COMPLETION OF GENE THERAPY INFUSION.
     Dates: start: 20250519, end: 20250520
  19. DEXTROSE [Concomitant]
     Active Substance: DEXTROSE MONOHYDRATE
     Dosage: 55 ML/HR, CONTINOUS, @ 55- 105 ML/HR
     Dates: start: 20250520, end: 20250521
  20. DEXTROSE [Concomitant]
     Active Substance: DEXTROSE MONOHYDRATE
     Dosage: CONTINOUS, @ 55- 105 ML/HR
     Dates: start: 20250521, end: 20250524
  21. DEXTROSE [Concomitant]
     Active Substance: DEXTROSE MONOHYDRATE
     Dosage: 55 ML, CONTINOUS, @ 55- 105 ML/HR
     Dates: start: 20250521, end: 20250521
  22. DEXTROSE [Concomitant]
     Active Substance: DEXTROSE MONOHYDRATE
     Dosage: 105 MILLILITER,CONTINOUS, @ 55- 105 ML/HR
     Dates: start: 20250524, end: 20250531
  23. DEXTROSE [Concomitant]
     Active Substance: DEXTROSE MONOHYDRATE
     Dosage: 105 MILLILITER,CONTINOUS, @ 55- 105 ML/HR
     Dates: start: 20250524, end: 20250524
  24. MAGNESIUM SULFATE [Concomitant]
     Active Substance: MAGNESIUM SULFATE
     Indication: Hypomagnesaemia
     Dosage: 920 MILLIGRAM, PRN FOR MAGNESIUM LESS THAN 1.5, @ 1.15 ML/HR ADMINISTERED OVER 240 MINUTES
     Dates: start: 20250519, end: 20250618
  25. PENTAMIDINE [Concomitant]
     Active Substance: PENTAMIDINE
     Indication: Prophylaxis
     Dosage: 95 MILLIGRAM, EVERY 28 DAYS, @ 19 ML/HR ADMINISTERED OVER 1 HOURS
     Dates: start: 20250519, end: 20250618
  26. VALACYCLOVIR [Concomitant]
     Active Substance: VALACYCLOVIR HYDROCHLORIDE
     Indication: Prophylaxis
     Dosage: 250 MILLIGRAM, BID
     Route: 061
     Dates: start: 20250519, end: 20250523
  27. DESITIN [COD-LIVER OIL;ZINC OXIDE] [Concomitant]
     Indication: Rash
     Dosage: UNK, PRN
     Route: 048
     Dates: start: 20250519, end: 20250618
  28. PETROLATUM [Concomitant]
     Active Substance: PETROLATUM
     Indication: Lip repair
     Dosage: UNK, BID
     Route: 048
     Dates: start: 20250519, end: 20250618
  29. SODIUM CHLORIDE [Concomitant]
     Active Substance: SODIUM CHLORIDE
     Indication: Dental disorder prophylaxis
     Dosage: 5 MILLILITER, TID, SWISH/SPIT
     Route: 061
     Dates: start: 20250519, end: 20250618
  30. SODIUM CHLORIDE [Concomitant]
     Active Substance: SODIUM CHLORIDE
     Indication: Catheter management
     Dosage: 1-20 ML, PRN
     Dates: start: 20250519, end: 20250618
  31. SODIUM CHLORIDE [Concomitant]
     Active Substance: SODIUM CHLORIDE
     Indication: Anaesthesia
     Dosage: 0-10 ML/HR
     Dates: start: 20250520, end: 20250618
  32. SODIUM CHLORIDE [Concomitant]
     Active Substance: SODIUM CHLORIDE
     Indication: Nasal congestion
     Dosage: 2 SPRAY, QD, PRN
     Dates: start: 20250524, end: 20250618
  33. SODIUM CHLORIDE [Concomitant]
     Active Substance: SODIUM CHLORIDE
     Indication: Catheter management
     Dosage: 50 MILLILITER, SINGLE
     Dates: start: 20250530, end: 20250530
  34. URSODIOL [Concomitant]
     Active Substance: URSODIOL
     Indication: Product used for unknown indication
     Dosage: 4.6 ML OF 50 MG/ML, TID
     Route: 061
     Dates: start: 20250519, end: 20250524
  35. URSODIOL [Concomitant]
     Active Substance: URSODIOL
     Dosage: 300 MILLIGRAM, TID
     Route: 061
     Dates: start: 20250524, end: 20250618
  36. CHLORHEXIDINE [Concomitant]
     Active Substance: CHLORHEXIDINE
     Indication: Enema administration
     Dosage: UNK, PRN
     Route: 048
     Dates: start: 20250519, end: 20250618
  37. EUCERIN [PARAFFIN, LIQUID;PETROLATUM;WOOL FAT] [Concomitant]
     Indication: Postoperative care
     Dosage: UNK, BID
     Route: 061
     Dates: start: 20250519, end: 20250618
  38. EMLA [Concomitant]
     Active Substance: LIDOCAINE\PRILOCAINE
     Indication: Premedication
     Dosage: UNK, PRN
     Route: 048
     Dates: start: 20250519, end: 20250618
  39. ALTEPLASE [Concomitant]
     Active Substance: ALTEPLASE
     Indication: Device occlusion
     Dosage: 2 MILLIGRAM, PRN
     Dates: start: 20250519, end: 20250618
  40. CEFEPIME [Concomitant]
     Active Substance: CEFEPIME HYDROCHLORIDE
     Indication: Pyrexia
     Dosage: 1200 MILLIGRAM, Q8H PRN
     Dates: start: 20250519, end: 20250607
  41. SUGAMMADEX [Concomitant]
     Active Substance: SUGAMMADEX
     Indication: Anaesthesia
     Dosage: 50 MILLIGRAM, ADMINISTERED DURING A SURGICAL / ANESTHETIC PROCEDURE
     Dates: start: 20250519, end: 20250519
  42. ROPIVACAINE [Concomitant]
     Active Substance: ROPIVACAINE
     Indication: Anaesthesia
     Dosage: 6 MILLILITER, ADMINISTERED DURING A SURGICAL / ANESTHETIC PROCEDURE
     Dates: start: 20250519, end: 20250519
  43. ONDANSETRON [Concomitant]
     Active Substance: ONDANSETRON
     Indication: Anaesthesia
     Dosage: 2.2 MILLIGRAM, ADMINISTERED DURING A SURGICAL / ANESTHETIC PROCEDURE
     Dates: start: 20250519, end: 20250519
  44. ONDANSETRON [Concomitant]
     Active Substance: ONDANSETRON
     Indication: Premedication
     Dosage: 3.4 MILLIGRAM, Q8H,13.6 ML/HR ADMINISTERED OVER 15 MINUTES
     Dates: start: 20250520, end: 20250615
  45. LACTATED RINGERS SOLUTION [Concomitant]
     Active Substance: CALCIUM CHLORIDE\POTASSIUM CHLORIDE\SODIUM CHLORIDE\SODIUM LACTATE
     Indication: Postoperative care
     Dosage: CONTINUOUS, @ 60 ML/HR
     Dates: start: 20250519, end: 20250519
  46. ACETAMINOPHEN [Concomitant]
     Active Substance: ACETAMINOPHEN
     Indication: Anaesthesia
     Dosage: 340 MILLIGRAM, ADMINISTERED DURING A SURGICAL / ANESTHETIC PROCEDURE
     Dates: start: 20250519, end: 20250519
  47. ACETAMINOPHEN [Concomitant]
     Active Substance: ACETAMINOPHEN
     Indication: Pyrexia
     Dosage: 92 MILLILITER, Q4H PRN, @ 92 ML/HR ADMINISTERED OVER 15 MINUTES
     Dates: start: 20250524, end: 20250618
  48. ACETAMINOPHEN [Concomitant]
     Active Substance: ACETAMINOPHEN
     Indication: Premedication
     Dosage: 136 MILLILITER, ONCE, @ 136 ML/HR ADMINISTERED OVER 15 MINUTES
     Dates: start: 20250530, end: 20250530
  49. DEXMEDETOMIDINE [Concomitant]
     Active Substance: DEXMEDETOMIDINE
     Indication: Anaesthesia
     Dosage: 4 MICROGRAM, ADMINISTERED DURING A SURGICAL / ANESTHETIC PROCEDURE
     Dates: start: 20250519, end: 20250519
  50. ROCURONIUM [Concomitant]
     Active Substance: ROCURONIUM BROMIDE
     Indication: Anaesthesia
     Dosage: 20 MILLIGRAM, ADMINISTERED DURING A SURGICAL / ANESTHETIC PROCEDURE
     Dates: start: 20250519, end: 20250519
  51. FENTANYL [Concomitant]
     Active Substance: FENTANYL
     Indication: Anaesthesia
     Dosage: 10 MICROGRAM, ADMINISTERED DURING A SURGICAL / ANESTHETIC PROCEDURE
     Dates: start: 20250519, end: 20250519
  52. FLUCONAZOLE [Concomitant]
     Active Substance: FLUCONAZOLE
     Indication: Product used for unknown indication
     Dosage: 136 MILLIGRAM, QD
     Route: 061
     Dates: start: 20250520, end: 20250523
  53. FLUCONAZOLE [Concomitant]
     Active Substance: FLUCONAZOLE
     Dosage: EVERY 24 HOURS, @ 35 ML/HR ADMINISTERED OVER 2 HOURS
     Dates: start: 20250524, end: 20250615
  54. DEXAMETHASONE [Concomitant]
     Active Substance: DEXAMETHASONE
     Indication: Premedication
     Dosage: 52.8 ML/HR ADMINISTERED OVER 5 MINUTES, QD
     Dates: start: 20250520, end: 20250520
  55. LEVOFLOXACIN [Concomitant]
     Active Substance: LEVOFLOXACIN
     Indication: Prophylaxis
     Dosage: 225 MILLIGRAM, QD
     Route: 061
     Dates: start: 20250520, end: 20250523
  56. LEVOFLOXACIN [Concomitant]
     Active Substance: LEVOFLOXACIN
     Dosage: DAILY, @ 45 ML/HR ADMINISTERED OVER 1 HOURS
     Dates: start: 20250524, end: 20250606
  57. ESOMEPRAZOLE [Concomitant]
     Active Substance: ESOMEPRAZOLE
     Indication: Product used for unknown indication
     Dosage: 20 MILLIGRAM, QD
     Route: 061
     Dates: start: 20250520, end: 20250524
  58. ESOMEPRAZOLE [Concomitant]
     Active Substance: ESOMEPRAZOLE
     Dosage: DAILY @ 5 ML/HR ADMINISTERED OVER 30 MINUTES
     Dates: start: 20250524, end: 20250614
  59. FUROSEMIDE [Concomitant]
     Active Substance: FUROSEMIDE
     Indication: Product used for unknown indication
     Dosage: 10 MILLIGRAM, SINGLE,@ 12 ML/HR ADMINISTERED OVER 5 MINUTES
     Dates: start: 20250521, end: 20250521
  60. HYDRALAZINE [Concomitant]
     Active Substance: HYDRALAZINE HYDROCHLORIDE
     Indication: Product used for unknown indication
     Dosage: 2.3 MILLIGRAM, SINGLE
     Dates: start: 20250522, end: 20250522
  61. ACYCLOVIR SODIUM [Concomitant]
     Active Substance: ACYCLOVIR SODIUM
     Indication: Product used for unknown indication
     Dosage: 22 MILLILITER, Q8H,@ 22 ML/HR ADMINISTERED OVER 1 HOURS
     Dates: start: 20250523, end: 20250614
  62. POLYETHYLENE GLYCOLS [Concomitant]
     Active Substance: POLYETHYLENE GLYCOLS
     Indication: Product used for unknown indication
     Dosage: 8.5 GRAM, QD
     Route: 061
     Dates: start: 20250523, end: 20250523
  63. LORAZEPAM [Concomitant]
     Active Substance: LORAZEPAM
     Indication: Prophylaxis of nausea and vomiting
     Dosage: 0.5 MILLIGRAM, Q6H PRN
     Dates: start: 20250524, end: 20250526
  64. LORAZEPAM [Concomitant]
     Active Substance: LORAZEPAM
     Dosage: 0.5 MILLIGRAM, Q6H PRN
     Dates: start: 20250526, end: 20250601
  65. MESNA [Concomitant]
     Active Substance: MESNA
     Indication: Premedication
     Dosage: 109.8 MILLILITER, EVERY 24 HOURS, @ 109.8 ML/HR ADMINISTERED OVER 5 HOURS, IN SODIUM CHLORIDE 0.9% 540 ML INFUSION
     Dates: start: 20250524, end: 20250527
  66. SCOPOLAMINE [Concomitant]
     Active Substance: SCOPOLAMINE
     Indication: Prophylaxis of nausea and vomiting
     Dosage: 0.5 EVERY 72 HOURS, PRN
     Dates: start: 20250525, end: 20250618
  67. DIPHENHYDRAMINE [Concomitant]
     Active Substance: DIPHENHYDRAMINE
     Indication: Hypersensitivity
     Dosage: 2.76 MILLILITER, Q6H PRN, @ 2.76 ML/HR ADMINISTERED OVER 10 MINUTES
     Dates: start: 20250527, end: 20250618
  68. DIPHENHYDRAMINE [Concomitant]
     Active Substance: DIPHENHYDRAMINE
     Dosage: 2.7 MILLILITER, ONCE, @ 2.7 ML/HR ADMINISTERED OVER 10 MINUTES
     Dates: start: 20250530, end: 20250530
  69. DIPHENHYDRAMINE [Concomitant]
     Active Substance: DIPHENHYDRAMINE
     Dosage: 2.76 MILLILITER, ONCE, @ 2.76 ML/HR ADMINISTERED OVER 10 MINUTES
     Dates: start: 20250530, end: 20250530
  70. ALBUTEROL [Concomitant]
     Active Substance: ALBUTEROL
     Indication: Product used for unknown indication
     Dosage: 2.5 MILLIGRAM, SINGLE
     Dates: start: 20250530, end: 20250530

REACTIONS (3)
  - Wheezing [Recovered/Resolved]
  - Cough [Recovered/Resolved]
  - Tachycardia [Recovered/Resolved]

NARRATIVE: CASE EVENT DATE: 20250530
